FAERS Safety Report 9324359 (Version 2)
Quarter: 2013Q3

REPORT INFORMATION
  Report Type: Spontaneous
  Country: US (occurrence: US)
  Receive Date: 20130603
  Receipt Date: 20130813
  Transmission Date: 20140515
  Serious: No
  Sender: FDA-Public Use
  Company Number: US-009507513-1305USA011336

PATIENT
  Sex: Female
  Weight: 87.53 kg

DRUGS (2)
  1. NEXPLANON [Suspect]
     Dosage: 1 ROD, UNK
     Route: 059
     Dates: start: 20130517
  2. NEXPLANON [Suspect]
     Dosage: 1 DF, UNK
     Route: 059
     Dates: start: 20130517

REACTIONS (4)
  - Medical device complication [Unknown]
  - Product quality issue [Unknown]
  - No adverse event [Unknown]
  - Medical device complication [Unknown]
